FAERS Safety Report 25129725 (Version 1)
Quarter: 2025Q1

REPORT INFORMATION
  Report Type: Spontaneous
  Country: FR (occurrence: FR)
  Receive Date: 20250327
  Receipt Date: 20250327
  Transmission Date: 20250409
  Serious: Yes (Death)
  Sender: PFIZER
  Company Number: None

PATIENT
  Age: 77 Year
  Sex: Male
  Weight: 77 kg

DRUGS (4)
  1. CARBOPLATIN [Suspect]
     Active Substance: CARBOPLATIN
     Indication: Lung neoplasm malignant
     Dosage: 720 MG, EVERY 3 WEEKS
     Route: 042
     Dates: start: 20240705, end: 20240916
  2. PACLITAXEL [Suspect]
     Active Substance: PACLITAXEL
     Indication: Lung neoplasm malignant
     Dosage: 180 MG, EVERY 3 WEEKS
     Route: 042
     Dates: start: 20240705, end: 20240916
  3. YERVOY [Suspect]
     Active Substance: IPILIMUMAB
     Indication: Lung neoplasm malignant
     Dosage: 360 MG, EVERY 3 WEEKS
     Route: 042
     Dates: start: 20240705, end: 20240916
  4. AMIODARONE [Suspect]
     Active Substance: AMIODARONE
     Indication: Atrial fibrillation
     Dosage: 200 MG, 1X/DAY
     Route: 048
     Dates: start: 202411, end: 20250116

REACTIONS (1)
  - Interstitial lung disease [Fatal]

NARRATIVE: CASE EVENT DATE: 20250104
